FAERS Safety Report 7982507-3 (Version None)
Quarter: 2011Q4

REPORT INFORMATION
  Report Type: 
  Country: None (occurrence: None)
  Receive Date: 20111215
  Receipt Date: 20111209
  Transmission Date: 20120403
  Serious: Yes (Hospitalization, Other)
  Sender: FDA-Public Use
  Company Number: US-AMGEN-USASP2011065686

PATIENT
  Age: 61 Year
  Sex: Male

DRUGS (1)
  1. ENBREL [Suspect]
     Indication: RHEUMATOID ARTHRITIS
     Dosage: 50 MG, QWK
     Dates: start: 20000401

REACTIONS (11)
  - OSTEOARTHRITIS [None]
  - RHEUMATOID ARTHRITIS [None]
  - RIB FRACTURE [None]
  - HIP FRACTURE [None]
  - PYREXIA [None]
  - WEIGHT DECREASED [None]
  - LYMPHADENOPATHY [None]
  - ROAD TRAFFIC ACCIDENT [None]
  - NODULE [None]
  - LOCAL REACTION [None]
  - DRUG EFFECT DECREASED [None]
